FAERS Safety Report 9813727 (Version 2)
Quarter: 2014Q1

REPORT INFORMATION
  Report Type: Report from Study
  Country: CA (occurrence: CA)
  Receive Date: 20140113
  Receipt Date: 20140113
  Transmission Date: 20141002
  Serious: Yes (Hospitalization)
  Sender: FDA-Public Use
  Company Number: CA-BRISTOL-MYERS SQUIBB COMPANY-15750714

PATIENT
  Age: 51 Year
  Sex: Male
  Weight: 139 kg

DRUGS (7)
  1. ORENCIA [Suspect]
     Indication: RHEUMATOID ARTHRITIS
     Dosage: INF:32;LAST DOSE:21APR11?2F72016-EXP-APR-2015?3C83972,EXP:SEP2015
     Route: 042
     Dates: start: 20080904
  2. METHOTREXATE [Concomitant]
  3. SULFA [Concomitant]
  4. FOLIC ACID [Concomitant]
  5. IRON [Concomitant]
     Dosage: IRON PILLS
  6. OXYCONTIN [Concomitant]
  7. SALAZOPYRIN [Concomitant]

REACTIONS (6)
  - Dizziness [Unknown]
  - Vomiting [Unknown]
  - Blood pressure increased [Unknown]
  - Adverse event [Unknown]
  - Urinary tract infection [Unknown]
  - Labyrinthitis [Unknown]
